FAERS Safety Report 18819440 (Version 1)
Quarter: 2021Q1

REPORT INFORMATION
  Report Type: Spontaneous
  Country: NL (occurrence: NL)
  Receive Date: 20210202
  Receipt Date: 20210202
  Transmission Date: 20210419
  Serious: Yes (Other)
  Sender: FDA-Public Use
  Company Number: NL-TEVA-2021-NL-1874244

PATIENT
  Age: 70 Year
  Sex: Female
  Weight: 62 kg

DRUGS (1)
  1. ALENDRONINEZUUR TABLET 70MG / BRAND NAME NOT SPECIFIED [Suspect]
     Active Substance: ALENDRONIC ACID
     Indication: OSTEOPOROSIS
     Dosage: 1 X PER WEEK:UNIT DOSE:70MILLIGRAM
     Dates: start: 20200727, end: 20200817

REACTIONS (5)
  - Nausea [Recovering/Resolving]
  - Rheumatoid arthritis [Unknown]
  - Visual impairment [Unknown]
  - Myalgia [Recovering/Resolving]
  - Fatigue [Recovering/Resolving]

NARRATIVE: CASE EVENT DATE: 2020
